FAERS Safety Report 10249059 (Version 1)
Quarter: 2014Q2

REPORT INFORMATION
  Report Type: Spontaneous
  Country: US (occurrence: US)
  Receive Date: 20140620
  Receipt Date: 20140620
  Transmission Date: 20141212
  Serious: Yes (Hospitalization, Other)
  Sender: FDA-Public Use
  Company Number: US-ASTRAZENECA-2014SE44127

PATIENT
  Age: 64 Year
  Sex: Female
  Weight: 97.5 kg

DRUGS (6)
  1. TOPROL-XL [Suspect]
     Indication: HYPERTENSION
     Route: 048
     Dates: start: 201304
  2. TOPROL-XL [Suspect]
     Indication: HYPERTENSION
     Route: 048
     Dates: start: 201309
  3. METFORMIN [Concomitant]
     Indication: DIABETES MELLITUS
     Route: 048
     Dates: start: 2002
  4. DIOVAN HCT [Concomitant]
     Indication: HYPERTENSION
     Dosage: 320 AND 25 MG DAILY
     Route: 048
  5. WARFARIN [Concomitant]
     Indication: THROMBOSIS
     Dosage: VARIOUS DOSES DAILY
     Route: 048
     Dates: start: 201309
  6. OXYBUTYNIN [Concomitant]
     Indication: HYPERHIDROSIS
     Route: 048
     Dates: start: 201402

REACTIONS (4)
  - Pulmonary embolism [Unknown]
  - Atrial fibrillation [Recovered/Resolved]
  - Dyspnoea [Unknown]
  - Heart rate irregular [Unknown]
